FAERS Safety Report 9269425 (Version 2)
Quarter: 2013Q2

REPORT INFORMATION
  Report Type: Spontaneous
  Country: US (occurrence: US)
  Receive Date: 20130503
  Receipt Date: 20130628
  Transmission Date: 20140414
  Serious: Yes (Hospitalization, Disabling)
  Sender: FDA-Public Use
  Company Number: US-BAYER-2013-052709

PATIENT
  Age: 34 Year
  Sex: Female
  Weight: 61 kg

DRUGS (5)
  1. YASMIN [Suspect]
  2. OCELLA [Suspect]
  3. ZARAH [Suspect]
  4. ALPRAZOLAM [Concomitant]
     Dosage: 0.5 MG, UNK
  5. ATIVAN [Concomitant]

REACTIONS (9)
  - Deep vein thrombosis [None]
  - Pulmonary embolism [None]
  - Pain [None]
  - Injury [None]
  - General physical health deterioration [None]
  - Anxiety [None]
  - Emotional distress [None]
  - Anhedonia [None]
  - Pain [None]
